FAERS Safety Report 5177560-9 (Version None)
Quarter: 2006Q4

REPORT INFORMATION
  Report Type: 
  Country: None (occurrence: None)
  Receive Date: 20061218
  Receipt Date: 20061017
  Transmission Date: 20070319
  Serious: Yes (Other)
  Sender: FDA-Public Use
  Company Number: FR-BOEHRINGER INGELHEIM PHARMACEUTICALS, INC.-2006-FF-01118FF

PATIENT
  Sex: Male
  Weight: 51 kg

DRUGS (5)
  1. SPIRIVA [Suspect]
     Indication: CHRONIC OBSTRUCTIVE PULMONARY DISEASE
     Route: 055
     Dates: start: 20061006, end: 20061013
  2. COAPROVEL [Concomitant]
     Route: 048
  3. NITRODERM [Concomitant]
     Route: 062
  4. ZOCOR [Concomitant]
     Route: 048
  5. TAMSULOSIN HCL [Concomitant]
     Dosage: TAMSULOSIN 0,4 LONG ACTING
     Route: 048

REACTIONS (2)
  - PROSTATITIS [None]
  - PYREXIA [None]
